FAERS Safety Report 19177451 (Version 1)
Quarter: 2021Q2

REPORT INFORMATION
  Report Type: Spontaneous
  Country: CA (occurrence: CA)
  Receive Date: 20210425
  Receipt Date: 20210425
  Transmission Date: 20210717
  Serious: Yes (Other)
  Sender: FDA-Public Use
  Company Number: CA-JNJFOC-20210443075

PATIENT
  Age: 58 Year
  Sex: Male
  Weight: 67 kg

DRUGS (1)
  1. INFLIXIMAB, RECOMBINANT [Suspect]
     Active Substance: INFLIXIMAB
     Indication: COLITIS ULCERATIVE
     Route: 042

REACTIONS (11)
  - Haematochezia [Recovered/Resolved]
  - Inappropriate schedule of product administration [Recovered/Resolved]
  - Off label use [Recovered/Resolved]
  - Feeling hot [Recovered/Resolved]
  - Intentional product use issue [Recovered/Resolved]
  - Erythema [Recovered/Resolved]
  - Blood pressure fluctuation [Recovered/Resolved]
  - Malaise [Recovered/Resolved]
  - Blood pressure increased [Recovered/Resolved]
  - Abdominal rigidity [Recovered/Resolved]
  - Abdominal pain [Recovered/Resolved]
